FAERS Safety Report 8008131-4 (Version None)
Quarter: 2011Q4

REPORT INFORMATION
  Report Type: 
  Country: None (occurrence: None)
  Receive Date: 20111227
  Receipt Date: 20111219
  Transmission Date: 20120403
  Serious: Yes (Hospitalization)
  Sender: FDA-Public Use
  Company Number: US-ASTRAZENECA-2011SE77027

PATIENT
  Age: 50 Year
  Sex: Female
  Weight: 59 kg

DRUGS (6)
  1. TROCHLORTER [Concomitant]
     Dosage: PRN
  2. ONDANSETRON [Concomitant]
     Dosage: PRN
  3. DEXAMETHASONE [Concomitant]
     Dosage: 4 MG
  4. OXYCODONE AND ACETAMINOPHEN [Concomitant]
     Dosage: 325 MG
  5. EMENG [Concomitant]
     Indication: CHEMOTHERAPY
     Dosage: 125 MG TRIPACK
  6. SEROQUEL [Suspect]
     Indication: AGITATION
     Route: 048

REACTIONS (5)
  - LYMPHADENOPATHY [None]
  - OFF LABEL USE [None]
  - LIP AND/OR ORAL CAVITY CANCER STAGE IV [None]
  - APHAGIA [None]
  - DRUG DOSE OMISSION [None]
